FAERS Safety Report 6688358-4 (Version None)
Quarter: 2010Q2

REPORT INFORMATION
  Report Type: 
  Country: None (occurrence: None)
  Receive Date: 20100420
  Receipt Date: 20100409
  Transmission Date: 20101027
  Serious: Yes (Other)
  Sender: FDA-Public Use
  Company Number: PHHY2010US22899

PATIENT
  Sex: Female

DRUGS (6)
  1. VIVELLE-DOT [Suspect]
     Dosage: 0.1 MG
     Route: 062
  2. DEPO-PROVERA [Suspect]
     Dosage: UNK
  3. HORMONES NOS [Suspect]
     Dosage: UNK
     Route: 048
  4. LEXAPRO [Concomitant]
     Dosage: 20 MG
  5. VALIUM [Concomitant]
     Dosage: UNK
  6. ANTIHYPERTENSIVE DRUGS [Concomitant]
     Dosage: UNK

REACTIONS (9)
  - DEPRESSION [None]
  - DRUG INEFFECTIVE [None]
  - FEELING ABNORMAL [None]
  - FEELING HOT [None]
  - HYPERHIDROSIS [None]
  - INSOMNIA [None]
  - MOOD SWINGS [None]
  - PAIN [None]
  - WITHDRAWAL SYNDROME [None]
